FAERS Safety Report 7978127-7 (Version None)
Quarter: 2011Q4

REPORT INFORMATION
  Report Type: 
  Country: None (occurrence: None)
  Receive Date: 20111212
  Receipt Date: 20111212
  Transmission Date: 20120403
  Serious: No
  Sender: FDA-Public Use
  Company Number: None

PATIENT
  Sex: Male
  Weight: 26.2 kg

DRUGS (6)
  1. CYCLOPHOSPHAMIDE [Suspect]
     Dosage: 2160 MG
  2. DOXORUBICIN HCL [Suspect]
     Dosage: 56 MG
  3. VINCRISTINE SULFATE [Suspect]
     Dosage: 2.8 MG
  4. MERCAPTOPURINE [Suspect]
     Dosage: 750 MG
  5. DAUNORUBICIN HCL [Suspect]
     Dosage: 74 MG
  6. METHOTREXATE [Suspect]
     Dosage: 124 MG

REACTIONS (2)
  - CHROMOSOME ANALYSIS ABNORMAL [None]
  - BONE MARROW DISORDER [None]
